FAERS Safety Report 5224384-X (Version None)
Quarter: 2007Q1

REPORT INFORMATION
  Report Type: 
  Country: None (occurrence: None)
  Receive Date: 20070130
  Receipt Date: 20070118
  Transmission Date: 20070707
  Serious: Yes (Hospitalization, Other)
  Sender: FDA-Public Use
  Company Number: US-PFIZER INC-2006058521

PATIENT
  Sex: Male

DRUGS (3)
  1. CELEBREX [Suspect]
     Indication: ARTHRITIS
     Route: 048
  2. ZOCOR [Concomitant]
  3. ACETYLSALICYLIC ACID [Concomitant]

REACTIONS (5)
  - FALL [None]
  - HAEMORRHAGE [None]
  - MYOCARDIAL INFARCTION [None]
  - STENT PLACEMENT [None]
  - VASCULAR OPERATION [None]
